FAERS Safety Report 4462889-X (Version None)
Quarter: 2004Q3

REPORT INFORMATION
  Report Type: 
  Country: None (occurrence: None)
  Receive Date: 20040927
  Receipt Date: 20040915
  Transmission Date: 20050211
  Serious: Yes (Hospitalization)
  Sender: FDA-Public Use
  Company Number: HQWYE116517SEP04

PATIENT
  Age: 33 Year
  Sex: Female

DRUGS (6)
  1. RAPAMUNE [Suspect]
     Indication: PROPHYLAXIS AGAINST TRANSPLANT REJECTION
     Dosage: 1 MG 2X PER 1 DAY
     Route: 048
     Dates: start: 20030926
  2. AZATHIOPRINE [Concomitant]
  3. PREDNISONE [Concomitant]
  4. ENALAPRIL MALEATE [Concomitant]
  5. DILTIAZEM [Concomitant]
  6. PRAVACHOL [Concomitant]

REACTIONS (5)
  - BLOOD CREATININE INCREASED [None]
  - DIARRHOEA [None]
  - IMMUNOSUPPRESSION [None]
  - INFECTION [None]
  - VOMITING [None]
